FAERS Safety Report 6508914-3 (Version None)
Quarter: 2009Q4

REPORT INFORMATION
  Report Type: 
  Country: None (occurrence: None)
  Receive Date: 20091221
  Receipt Date: 20090915
  Transmission Date: 20100525
  Serious: No
  Sender: FDA-Public Use
  Company Number: US-ASTRAZENECA-2009SE13729

PATIENT
  Age: 71 Year
  Sex: Male
  Weight: 90.7 kg

DRUGS (6)
  1. CRESTOR [Suspect]
     Route: 048
     Dates: start: 20090401
  2. CRESTOR [Suspect]
     Route: 048
     Dates: start: 20090701
  3. WARFARIN SODIUM [Concomitant]
  4. NIASPAN [Concomitant]
  5. CARDIZEM [Concomitant]
  6. COREG [Concomitant]

REACTIONS (2)
  - HIGH DENSITY LIPOPROTEIN DECREASED [None]
  - THERAPEUTIC RESPONSE UNEXPECTED [None]
